FAERS Safety Report 23234357 (Version 1)
Quarter: 2023Q4

REPORT INFORMATION
  Report Type: Spontaneous
  Country: US (occurrence: US)
  Receive Date: 20231128
  Receipt Date: 20231128
  Transmission Date: 20240109
  Serious: Yes (Other)
  Sender: FDA-Public Use
  Company Number: US-HIKMA PHARMACEUTICALS USA INC.-US-H14001-23-67161

PATIENT

DRUGS (1)
  1. AMIKACIN [Suspect]
     Active Substance: AMIKACIN
     Indication: Product used for unknown indication
     Dosage: UNKNOWN
     Route: 065

REACTIONS (4)
  - Bacteraemia [Unknown]
  - Mycobacterium abscessus infection [Unknown]
  - Wound infection [Unknown]
  - Pneumonia [Unknown]

NARRATIVE: CASE EVENT DATE: 20230101
